FAERS Safety Report 26095391 (Version 1)
Quarter: 2025Q4

REPORT INFORMATION
  Report Type: Spontaneous
  Country: US (occurrence: US)
  Receive Date: 20251127
  Receipt Date: 20251127
  Transmission Date: 20260118
  Serious: No
  Sender: SANDOZ
  Company Number: US-SANDOZ-SDZ2025US088034

PATIENT
  Sex: Male

DRUGS (1)
  1. ALBUTEROL SULFATE [Suspect]
     Active Substance: ALBUTEROL SULFATE
     Indication: Chronic obstructive pulmonary disease
     Dosage: 2 PUFFS EVERY 6 HOURS, DOSAGE STRENGTH: 90MCG/DOS 200DOS  1ASP
     Route: 055

REACTIONS (2)
  - Circumstance or information capable of leading to device use error [Unknown]
  - Device issue [Unknown]

NARRATIVE: CASE EVENT DATE: 20251117
